FAERS Safety Report 5377738-5 (Version None)
Quarter: 2007Q3

REPORT INFORMATION
  Report Type: 
  Country: None (occurrence: None)
  Receive Date: 20070703
  Receipt Date: 20070621
  Transmission Date: 20080115
  Serious: Yes (Other)
  Sender: FDA-Public Use
  Company Number: FR-PFIZER INC-2007050769

PATIENT
  Sex: Female

DRUGS (2)
  1. LYRICA [Suspect]
     Indication: POST HERPETIC NEURALGIA
  2. NEURONTIN [Suspect]
     Indication: POST HERPETIC NEURALGIA

REACTIONS (3)
  - DELIRIUM [None]
  - DRUG INEFFECTIVE [None]
  - PARANOIA [None]
